FAERS Safety Report 4568945-X (Version None)
Quarter: 2005Q1

REPORT INFORMATION
  Report Type: 
  Country: None (occurrence: None)
  Receive Date: 20050203
  Receipt Date: 20050120
  Transmission Date: 20050727
  Serious: Yes (Hospitalization)
  Sender: FDA-Public Use
  Company Number: US-SOLVAY-00205000199

PATIENT
  Age: 14653 Day
  Sex: Female
  Weight: 75 kg

DRUGS (3)
  1. TYLENOL [Concomitant]
     Indication: HEADACHE
     Dosage: DAILY DOSE: 1000 MILLIGRAM(S)
     Route: 048
     Dates: start: 19940101
  2. ESTRATEST H.S. [Suspect]
     Indication: MENOPAUSAL SYMPTOMS
     Dosage: DAILY DOSE: 1 DOSAGE FORM
     Route: 048
     Dates: start: 20041105, end: 20050113
  3. ESTROGENS ESTERIFIED [Suspect]
     Indication: ILL-DEFINED DISORDER
     Dosage: DAILY DOSE:  UNKNOWN
     Route: 048
     Dates: start: 20040924, end: 20041104

REACTIONS (7)
  - BLOOD PRESSURE INCREASED [None]
  - CHEST PAIN [None]
  - DIZZINESS [None]
  - DYSPNOEA [None]
  - ECHOCARDIOGRAM ABNORMAL [None]
  - HEART SOUNDS ABNORMAL [None]
  - MUSCULOSKELETAL CHEST PAIN [None]
